FAERS Safety Report 14715032 (Version 1)
Quarter: 2018Q2

REPORT INFORMATION
  Report Type: Spontaneous
  Country: US (occurrence: US)
  Receive Date: 20180404
  Receipt Date: 20180404
  Transmission Date: 20180711
  Serious: Yes (Hospitalization)
  Sender: FDA-Public Use
  Company Number: US-BAYER-2018-060660

PATIENT
  Sex: Male
  Weight: 97 kg

DRUGS (8)
  1. LOSARTAN POTASSIUM W/HYDROCHLOROTHIAZIDE [Concomitant]
     Active Substance: HYDROCHLOROTHIAZIDE\LOSARTAN POTASSIUM
  2. METOPROLOL SUCCINATE. [Concomitant]
     Active Substance: METOPROLOL SUCCINATE
  3. CALCITRIOL. [Concomitant]
     Active Substance: CALCITRIOL
  4. ASPIRIN. [Concomitant]
     Active Substance: ASPIRIN
     Indication: PROPHYLAXIS
     Dosage: 1 DF, QD
     Route: 048
  5. ALEVE [Suspect]
     Active Substance: NAPROXEN SODIUM
     Indication: PAIN
     Dosage: 2-3 ONCE OR TWICE DAILY
     Route: 048
  6. WARFARIN [Concomitant]
     Active Substance: WARFARIN
  7. ISOSORBIDE MONONITRATE. [Concomitant]
     Active Substance: ISOSORBIDE MONONITRATE
  8. NITROLINGUAL [Concomitant]
     Active Substance: NITROGLYCERIN

REACTIONS (2)
  - Drug ineffective [Unknown]
  - Gastric haemorrhage [Unknown]
